FAERS Safety Report 16320314 (Version 1)
Quarter: 2019Q2

REPORT INFORMATION
  Report Type: Spontaneous
  Country: US (occurrence: US)
  Receive Date: 20190515
  Receipt Date: 20190515
  Transmission Date: 20190711
  Serious: Yes (Hospitalization)
  Sender: FDA-Public Use
  Company Number: None

PATIENT
  Age: 57 Year
  Sex: Male

DRUGS (9)
  1. FEROSUL [Concomitant]
     Dates: start: 20181120
  2. CANDESARTAN. [Concomitant]
     Active Substance: CANDESARTAN
     Dates: start: 20190404
  3. IMATINIB MES [Suspect]
     Active Substance: IMATINIB MESYLATE
     Indication: GASTROINTESTINAL STROMAL TUMOUR
     Route: 048
     Dates: start: 20180921
  4. OLMESA MEDOX [Concomitant]
     Dates: start: 20190329
  5. PANTOPRAZOLE [Concomitant]
     Active Substance: PANTOPRAZOLE
     Dates: start: 20190512
  6. ATORVASTATIN [Concomitant]
     Active Substance: ATORVASTATIN
     Dates: start: 20190122
  7. SERTRALINE [Concomitant]
     Active Substance: SERTRALINE HYDROCHLORIDE
     Dates: start: 20180725
  8. ELIQUIS [Concomitant]
     Active Substance: APIXABAN
     Dates: start: 20190131
  9. METFORMIN [Concomitant]
     Active Substance: METFORMIN HYDROCHLORIDE
     Dates: start: 20190122

REACTIONS (1)
  - Gastrointestinal stromal tumour [None]

NARRATIVE: CASE EVENT DATE: 20190507
